FAERS Safety Report 20073364 (Version 4)
Quarter: 2022Q1

REPORT INFORMATION
  Report Type: Report from Study
  Country: JM (occurrence: JM)
  Receive Date: 20211116
  Receipt Date: 20220106
  Transmission Date: 20220423
  Serious: Yes (Death, Other)
  Sender: FDA-Public Use
  Company Number: JM-NOVARTISPH-PHHY2018JM043107

PATIENT
  Age: 63 Year
  Sex: Male
  Weight: 68.6 kg

DRUGS (8)
  1. GLIVEC [Suspect]
     Active Substance: IMATINIB MESYLATE
     Indication: Chronic myeloid leukaemia
     Dosage: 400 MG
     Route: 065
     Dates: start: 20170818
  2. GLIVEC [Suspect]
     Active Substance: IMATINIB MESYLATE
     Dosage: 600 MG
     Route: 048
  3. GLIVEC [Suspect]
     Active Substance: IMATINIB MESYLATE
     Dosage: 400 MG
     Route: 065
     Dates: start: 20200501
  4. GLIVEC [Suspect]
     Active Substance: IMATINIB MESYLATE
     Dosage: 3 DF
     Route: 065
  5. GLIVEC [Suspect]
     Active Substance: IMATINIB MESYLATE
     Dosage: 600 MG (1X 400MG + 2X 100 MG TABLET)
     Route: 065
  6. GLIVEC [Suspect]
     Active Substance: IMATINIB MESYLATE
     Dosage: UNK
     Route: 065
     Dates: end: 202012
  7. ALLOPURINOL [Concomitant]
     Active Substance: ALLOPURINOL
     Indication: Product used for unknown indication
     Dosage: 100 MG, QD
     Route: 048
  8. PANADEINE [Concomitant]
     Indication: Product used for unknown indication
     Dosage: UNK, PRN (2 TABS)
     Route: 065

REACTIONS (12)
  - Hyperleukocytosis [Fatal]
  - Anaemia [Fatal]
  - Respiratory disorder [Fatal]
  - General physical health deterioration [Fatal]
  - Leukostasis syndrome [Fatal]
  - Blast crisis in myelogenous leukaemia [Fatal]
  - Myelofibrosis [Fatal]
  - Deep vein thrombosis [Unknown]
  - Cytopenia [Recovering/Resolving]
  - Neutropenia [Unknown]
  - Diarrhoea [Not Recovered/Not Resolved]
  - Swelling [Not Recovered/Not Resolved]

NARRATIVE: CASE EVENT DATE: 20171013
